FAERS Safety Report 6055888-8 (Version None)
Quarter: 2009Q1

REPORT INFORMATION
  Report Type: 
  Country: None (occurrence: None)
  Receive Date: 20090128
  Receipt Date: 20090114
  Transmission Date: 20090719
  Serious: Yes (Hospitalization, Other)
  Sender: FDA-Public Use
  Company Number: ES-ABBOTT-09P-144-0499702-00

PATIENT
  Age: 54 Year
  Sex: Male

DRUGS (4)
  1. LOPINAVIR AND RITONAVIR [Suspect]
     Indication: HIV INFECTION
     Route: 048
     Dates: start: 20010101
  2. ZIDOVUDINE [Suspect]
     Indication: HIV INFECTION
     Route: 048
     Dates: start: 20010101
  3. LAMIVUDINE [Suspect]
     Indication: HIV INFECTION
     Route: 048
     Dates: start: 20010101
  4. FLUTICASONE PROPIONATE [Suspect]
     Indication: BRONCHOSPASM
     Route: 055
     Dates: start: 20060101, end: 20060601

REACTIONS (8)
  - BRONCHOSPASM [None]
  - CENTRAL OBESITY [None]
  - CUSHING'S SYNDROME [None]
  - CUSHINGOID [None]
  - DRUG INTERACTION [None]
  - LIPOHYPERTROPHY [None]
  - RESPIRATORY TRACT INFECTION [None]
  - SKIN STRIAE [None]
